FAERS Safety Report 7269551-9 (Version None)
Quarter: 2011Q1

REPORT INFORMATION
  Report Type: 
  Country: None (occurrence: None)
  Receive Date: 20110202
  Receipt Date: 20110121
  Transmission Date: 20110831
  Serious: No
  Sender: FDA-Public Use
  Company Number: US-JNJFOC-20101105934

PATIENT
  Sex: Male

DRUGS (6)
  1. INVEGA SUSTENNA [Suspect]
     Indication: SCHIZOPHRENIA
     Route: 030
  2. INVEGA [Concomitant]
     Indication: ILL-DEFINED DISORDER
     Route: 048
  3. INVEGA SUSTENNA [Suspect]
     Route: 030
  4. INVEGA SUSTENNA [Suspect]
     Indication: BIPOLAR DISORDER
     Route: 030
  5. INVEGA SUSTENNA [Suspect]
     Route: 030
  6. RISPERDAL CONSTA [Concomitant]
     Indication: ILL-DEFINED DISORDER
     Route: 030

REACTIONS (4)
  - AGGRESSION [None]
  - RESTLESS LEGS SYNDROME [None]
  - AGITATION [None]
  - INJECTION SITE REACTION [None]
